FAERS Safety Report 23248088 (Version 2)
Quarter: 2024Q4

REPORT INFORMATION
  Report Type: Spontaneous
  Country: US (occurrence: US)
  Receive Date: 20231130
  Receipt Date: 20241220
  Transmission Date: 20250115
  Serious: No
  Sender: BIOMARIN
  Company Number: US-SA-SAC20231116001219

PATIENT

DRUGS (1)
  1. LARONIDASE [Suspect]
     Active Substance: LARONIDASE
     Indication: Mucopolysaccharidosis I
     Dosage: 60.9 (UNITS NOT PROVIDED), QW
     Route: 042
     Dates: start: 20050214

REACTIONS (3)
  - COVID-19 [Recovering/Resolving]
  - Depression [Unknown]
  - Pain [Unknown]
